FAERS Safety Report 4865052-3 (Version None)
Quarter: 2005Q4

REPORT INFORMATION
  Report Type: 
  Country: None (occurrence: None)
  Receive Date: 20051219
  Receipt Date: 20051205
  Transmission Date: 20060501
  Serious: Yes (Disabling)
  Sender: FDA-Public Use
  Company Number: 2005155584

PATIENT
  Age: 74 Year
  Sex: Male
  Weight: 73 kg

DRUGS (6)
  1. XANAX [Suspect]
     Indication: ANXIETY
     Dosage: 6 MG (0.25 MG, 3 IN 1 D) ORAL
     Route: 048
     Dates: start: 19950101, end: 20050701
  2. MYOLASTAN (TETRAZEPAM) [Suspect]
     Indication: BACK PAIN
     Dosage: 25 MG (1 IN 1 D) ORAL
     Route: 048
     Dates: start: 20050601, end: 20050601
  3. VALPROATE SODIUM [Suspect]
     Indication: HYPOTONIA
     Dosage: 600 MG (300 MG, 2 IN 1 D) ORAL
     Route: 048
     Dates: start: 20050601, end: 20050601
  4. LUMIRELAX (METHOCARAMOL, METHYL NICOTINATE) [Suspect]
     Indication: HYPOTONIA
     Dosage: 4 IN 1 D ORAL
     Route: 048
     Dates: start: 20050601, end: 20050601
  5. DEXCHLORPHENIRAMINE [Concomitant]
  6. ZOLPIDEM TARTRATE [Concomitant]

REACTIONS (21)
  - ARRHYTHMIA [None]
  - ATROPHY [None]
  - BACK PAIN [None]
  - BLOOD CREATININE ABNORMAL [None]
  - BLOOD UREA ABNORMAL [None]
  - DIFFICULTY IN WALKING [None]
  - ECZEMA [None]
  - HYPERSENSITIVITY [None]
  - INCREASED APPETITE [None]
  - INSOMNIA [None]
  - MUSCLE CONTRACTURE [None]
  - MUSCLE RIGIDITY [None]
  - MYOSITIS [None]
  - OEDEMA [None]
  - PARALYSIS [None]
  - REBOUND EFFECT [None]
  - RED BLOOD CELL COUNT DECREASED [None]
  - RED BLOOD CELL SEDIMENTATION RATE DECREASED [None]
  - RED BLOOD CELL SEDIMENTATION RATE INCREASED [None]
  - RHABDOMYOLYSIS [None]
  - WHITE BLOOD CELL COUNT DECREASED [None]
